FAERS Safety Report 8606677-9 (Version None)
Quarter: 2012Q3

REPORT INFORMATION
  Report Type: 
  Country: None (occurrence: None)
  Receive Date: 20120820
  Receipt Date: 20120807
  Transmission Date: 20120928
  Serious: Yes (Hospitalization)
  Sender: FDA-Public Use
  Company Number: ZA-ELI_LILLY_AND_COMPANY-ZA201208004643

PATIENT
  Age: 17 Year
  Sex: Female

DRUGS (3)
  1. HUMULIN N [Suspect]
     Indication: DIABETES MELLITUS
     Dosage: 14 U, EACH EVENING
     Route: 058
     Dates: start: 20120614
  2. ANTIHYPERTENSIVES [Concomitant]
     Indication: HYPERTENSION
     Dosage: UNK, UNKNOWN
  3. HUMULIN R [Suspect]
     Indication: DIABETES MELLITUS
     Dosage: 12 U, TID
     Route: 058
     Dates: start: 20120614

REACTIONS (3)
  - WHITE BLOOD CELLS URINE [None]
  - DIABETIC KETOACIDOSIS [None]
  - INFLUENZA [None]
